FAERS Safety Report 17895496 (Version 7)
Quarter: 2021Q1

REPORT INFORMATION
  Report Type: Spontaneous
  Country: US (occurrence: US)
  Receive Date: 20200615
  Receipt Date: 20210316
  Transmission Date: 20210419
  Serious: No
  Sender: FDA-Public Use
  Company Number: US-GLAXOSMITHKLINE-US2020AMR098898

PATIENT
  Sex: Female

DRUGS (5)
  1. ZEJULA [Suspect]
     Active Substance: NIRAPARIB
     Indication: FALLOPIAN TUBE CANCER
     Dosage: 200 MG, QD
     Dates: start: 20200526
  2. ZEJULA [Suspect]
     Active Substance: NIRAPARIB
     Dosage: 200 MG, QD
     Route: 048
  3. ZEJULA [Suspect]
     Active Substance: NIRAPARIB
     Dosage: 200 MG, QD
     Route: 048
     Dates: start: 2020
  4. ZEJULA [Suspect]
     Active Substance: NIRAPARIB
     Dosage: 200 MG, QD
     Dates: start: 2020
  5. ZEJULA [Suspect]
     Active Substance: NIRAPARIB
     Dosage: 200 MG, QD
     Route: 048
     Dates: start: 2020

REACTIONS (20)
  - Gastrointestinal disorder [Unknown]
  - Stress [Unknown]
  - Product dose omission issue [Unknown]
  - Dry mouth [Unknown]
  - Headache [Recovered/Resolved]
  - Anxiety [Recovered/Resolved]
  - Diarrhoea [Unknown]
  - Fatigue [Unknown]
  - Epistaxis [Unknown]
  - Insomnia [Recovered/Resolved]
  - Arthralgia [Unknown]
  - Pain [Unknown]
  - Heart rate increased [Recovered/Resolved]
  - Stomatitis [Recovering/Resolving]
  - Rhinorrhoea [Unknown]
  - Constipation [Recovering/Resolving]
  - Dyspepsia [Unknown]
  - Underdose [Unknown]
  - Nausea [Unknown]
  - Bone pain [Unknown]
